FAERS Safety Report 11713635 (Version 2)
Quarter: 2016Q1

REPORT INFORMATION
  Report Type: Spontaneous
  Country: US (occurrence: US)
  Receive Date: 20151109
  Receipt Date: 20160107
  Transmission Date: 20160525
  Serious: Yes (Hospitalization)
  Sender: FDA-Public Use
  Company Number: US-JNJFOC-20151106436

PATIENT
  Age: 83 Year
  Sex: Male

DRUGS (2)
  1. COUMADIN [Suspect]
     Active Substance: WARFARIN SODIUM
     Indication: PRODUCT USED FOR UNKNOWN INDICATION
     Route: 065
  2. XARELTO [Suspect]
     Active Substance: RIVAROXABAN
     Indication: DEEP VEIN THROMBOSIS
     Route: 048
     Dates: start: 201407, end: 201411

REACTIONS (2)
  - Subarachnoid haemorrhage [Unknown]
  - Subdural haematoma [Recovering/Resolving]

NARRATIVE: CASE EVENT DATE: 20141124
